FAERS Safety Report 19121866 (Version 1)
Quarter: 2021Q2

REPORT INFORMATION
  Report Type: Spontaneous
  Country: US (occurrence: US)
  Receive Date: 20210412
  Receipt Date: 20210412
  Transmission Date: 20210717
  Serious: Yes (Hospitalization)
  Sender: FDA-Public Use
  Company Number: None

PATIENT
  Age: 55 Year
  Sex: Female
  Weight: 61.2 kg

DRUGS (1)
  1. INFLECTRA [Suspect]
     Active Substance: INFLIXIMAB-DYYB
     Indication: CROHN^S DISEASE
     Dosage: ?          OTHER FREQUENCY:WK 0,2, 6 THEN Q8W;?
     Route: 042

REACTIONS (5)
  - Hypotension [None]
  - Dyspnoea [None]
  - Nausea [None]
  - Anaphylactic reaction [None]
  - Vomiting [None]

NARRATIVE: CASE EVENT DATE: 20210324
